FAERS Safety Report 7706416-X (Version None)
Quarter: 2011Q3

REPORT INFORMATION
  Report Type: 
  Country: None (occurrence: None)
  Receive Date: 20110802
  Receipt Date: 20110531
  Transmission Date: 20111222
  Serious: Yes (Other)
  Sender: FDA-Public Use
  Company Number: 284244USA

PATIENT
  Age: 54 Year
  Sex: Female

DRUGS (2)
  1. ARIPIPRAZOLE [Concomitant]
  2. DIVALPROEX SODIUM [Suspect]
     Indication: MENTAL DISORDER
     Dosage: (250 MG), ORAL
     Route: 048
     Dates: start: 20110101

REACTIONS (2)
  - DYSKINESIA [None]
  - ALOPECIA [None]
